FAERS Safety Report 9003210 (Version 1)
Quarter: 2013Q1

REPORT INFORMATION
  Report Type: Spontaneous
  Country: BR (occurrence: BR)
  Receive Date: 20130108
  Receipt Date: 20130108
  Transmission Date: 20140127
  Serious: Yes (Hospitalization)
  Sender: FDA-Public Use
  Company Number: PHHY2012BR110470

PATIENT
  Sex: Female

DRUGS (13)
  1. DIOVAN [Suspect]
     Indication: HYPERTENSION
     Dosage: 320 MG, QD
  2. DIOVAN HCT [Suspect]
     Indication: HYPERTENSION
     Dosage: 1 DF (320/12.5 MG) PER DAY
     Route: 048
  3. ADALAT - SLOW RELEASE [Concomitant]
     Indication: HYPERTENSION
  4. METILDOPA [Concomitant]
     Indication: HYPERTENSION
  5. VASTAREL [Concomitant]
     Indication: CARDIAC DISORDER
  6. SUSTRATE [Concomitant]
  7. RASILEZ [Concomitant]
     Indication: HYPERTENSION
  8. ATENOLOL [Concomitant]
     Indication: HYPERTENSION
  9. SOMALGIN [Concomitant]
  10. GLUCOVANCE [Concomitant]
     Indication: DIABETES MELLITUS
  11. CITALOR [Concomitant]
     Indication: BLOOD CHOLESTEROL
  12. ONBRIZE [Concomitant]
     Dosage: 1 DF PER DAY
     Dates: start: 20121119
  13. SPIRIVA [Concomitant]
     Dosage: UNK UKN, UNK
     Dates: start: 20121119

REACTIONS (3)
  - Pneumonia [Recovered/Resolved]
  - Hypoxia [Not Recovered/Not Resolved]
  - Feeling of despair [Not Recovered/Not Resolved]
